FAERS Safety Report 9557956 (Version 1)
Quarter: 2013Q3

REPORT INFORMATION
  Report Type: Spontaneous
  Country: GB (occurrence: GB)
  Receive Date: 20130926
  Receipt Date: 20130926
  Transmission Date: 20140515
  Serious: Yes (Life-Threatening, Hospitalization, Disabling, Other)
  Sender: FDA-Public Use
  Company Number: GB-TEVA-434009ISR

PATIENT
  Age: 77 Year
  Sex: Male
  Weight: 92.7 kg

DRUGS (6)
  1. TERBINAFINE [Suspect]
     Indication: ONYCHOMYCOSIS
     Route: 048
     Dates: start: 20130806, end: 20130819
  2. CLOPIDOGREL [Concomitant]
  3. ATORVASTATIN [Concomitant]
  4. METFORMIN [Concomitant]
  5. FLUCLOXACILLIN [Concomitant]
  6. PENICILLIN V [Concomitant]

REACTIONS (7)
  - Renal failure acute [Unknown]
  - Renal impairment [Unknown]
  - Arthralgia [Unknown]
  - Dermatitis exfoliative [Not Recovered/Not Resolved]
  - Psoriasis [Unknown]
  - Erythema [Unknown]
  - Rash [Unknown]
